FAERS Safety Report 10949177 (Version 1)
Quarter: 2015Q1

REPORT INFORMATION
  Report Type: Spontaneous
  Country: US (occurrence: None)
  Receive Date: 20150323
  Receipt Date: 20150323
  Transmission Date: 20150721
  Serious: Yes (Life-Threatening, Hospitalization)
  Sender: FDA-Public Use
  Company Number: None

PATIENT
  Age: 68 Year
  Sex: Female
  Weight: 83.92 kg

DRUGS (4)
  1. CENTRUM SILVER FOR WOMEN [Concomitant]
  2. ACETAMINOPHEN-COD #3 [Concomitant]
  3. CRESTOR [Concomitant]
     Active Substance: ROSUVASTATIN CALCIUM
  4. DICLOFENAC SODIUM. [Suspect]
     Active Substance: DICLOFENAC SODIUM
     Indication: ARTHRITIS
     Route: 048
     Dates: start: 20140807, end: 20140916

REACTIONS (13)
  - Dialysis [None]
  - Tubulointerstitial nephritis [None]
  - Weight increased [None]
  - Dysuria [None]
  - Discomfort [None]
  - Renal impairment [None]
  - Acute kidney injury [None]
  - Anaemia [None]
  - Blood pressure decreased [None]
  - Cardiac failure congestive [None]
  - Influenza [None]
  - Ocular hyperaemia [None]
  - Musculoskeletal disorder [None]

NARRATIVE: CASE EVENT DATE: 20140915
